FAERS Safety Report 21340120 (Version 1)
Quarter: 2022Q3

REPORT INFORMATION
  Report Type: Spontaneous
  Country: US (occurrence: None)
  Receive Date: 20220916
  Receipt Date: 20220916
  Transmission Date: 20221027
  Serious: No
  Sender: FDA-Public Use
  Company Number: 2022A298727

PATIENT
  Age: 11869 Day
  Sex: Female
  Weight: 67.7 kg

DRUGS (1)
  1. TEZSPIRE [Suspect]
     Active Substance: TEZEPELUMAB-EKKO
     Indication: Asthma
     Dosage: 210MG/1.9ML
     Route: 058
     Dates: start: 20220720

REACTIONS (4)
  - Product dose omission issue [Unknown]
  - Gait inability [Unknown]
  - Decreased activity [Unknown]
  - Procedural pain [Unknown]

NARRATIVE: CASE EVENT DATE: 20220817
